FAERS Safety Report 16470825 (Version 1)
Quarter: 2019Q2

REPORT INFORMATION
  Report Type: Spontaneous
  Country: CA (occurrence: CA)
  Receive Date: 20190624
  Receipt Date: 20190624
  Transmission Date: 20190711
  Serious: Yes (Hospitalization)
  Sender: FDA-Public Use
  Company Number: CA-TEVA-2019-CA-1067109

PATIENT
  Age: 49 Year
  Sex: Female
  Weight: 58 kg

DRUGS (17)
  1. ASA [Concomitant]
     Active Substance: ASPIRIN
  2. ATORVASTATIN CALCIUM. [Concomitant]
     Active Substance: ATORVASTATIN CALCIUM
  3. CALCIUM CARBONATE. [Concomitant]
     Active Substance: CALCIUM CARBONATE
  4. ARANESP [Concomitant]
     Active Substance: DARBEPOETIN ALFA
     Route: 042
  5. HUMALOG [Concomitant]
     Active Substance: INSULIN LISPRO
  6. PREDNISONE. [Concomitant]
     Active Substance: PREDNISONE
  7. AMLODIPINE [Concomitant]
     Active Substance: AMLODIPINE BESYLATE
  8. ATOVAQUONE PROGUANIL [Concomitant]
     Active Substance: ATOVAQUONE\PROGUANIL
  9. COLACE [Concomitant]
     Active Substance: DOCUSATE SODIUM
  10. SENNOSIDES. [Concomitant]
     Active Substance: SENNOSIDES
  11. DEXILANT [Concomitant]
     Active Substance: DEXLANSOPRAZOLE
  12. DIAMINE [ASCORBIC ACID;VITAMIN BCOMPLEX] [Concomitant]
  13. LORAZEPAM. [Concomitant]
     Active Substance: LORAZEPAM
  14. SYNTHROID [Concomitant]
     Active Substance: LEVOTHYROXINE SODIUM
  15. ZOPICLONE [Concomitant]
     Active Substance: ZOPICLONE
  16. AMIODARONE HYDROCHLORIDE. [Suspect]
     Active Substance: AMIODARONE HYDROCHLORIDE
     Indication: ATRIAL FIBRILLATION
     Dosage: 200 MILLIGRAM DAILY;
     Route: 065
  17. VITAMINS [ASCORBIC ACID; ERGOCALCIFEROL; NICOTINAMIDE; RETINOL; RIBOFL [Concomitant]

REACTIONS (4)
  - Jaundice [Unknown]
  - Hepatitis cholestatic [Unknown]
  - Faeces pale [Unknown]
  - Dyspnoea [Unknown]
